FAERS Safety Report 8135852-5 (Version None)
Quarter: 2012Q1

REPORT INFORMATION
  Report Type: 
  Country: None (occurrence: None)
  Receive Date: 20120214
  Receipt Date: 20120209
  Transmission Date: 20120608
  Serious: Yes (Other)
  Sender: FDA-Public Use
  Company Number: US-GLAXOSMITHKLINE-A0965273A

PATIENT
  Sex: Female

DRUGS (3)
  1. PROMACTA [Suspect]
     Indication: PRODUCT USED FOR UNKNOWN INDICATION
     Dosage: 75MG PER DAY
     Route: 048
     Dates: start: 20090101
  2. HEPARIN [Suspect]
     Route: 065
     Dates: start: 20120101
  3. NO CONCURRENT MEDICATION [Concomitant]

REACTIONS (5)
  - THROMBOCYTOPENIA [None]
  - ABDOMINAL PAIN [None]
  - PLATELET COUNT DECREASED [None]
  - PLATELET COUNT INCREASED [None]
  - PORTAL VEIN THROMBOSIS [None]
